FAERS Safety Report 25307435 (Version 1)
Quarter: 2025Q2

REPORT INFORMATION
  Report Type: Spontaneous
  Country: CN (occurrence: CN)
  Receive Date: 20250513
  Receipt Date: 20250513
  Transmission Date: 20250717
  Serious: Yes (Hospitalization, Other)
  Sender: INNOVIVA
  Company Number: CN-ISTX-2025-ISTX-000059

PATIENT
  Age: 65 Year
  Sex: Male

DRUGS (1)
  1. ZEVTERA [Suspect]
     Active Substance: CEFTOBIPROLE MEDOCARIL SODIUM
     Indication: Infection
     Dosage: 500 MG, TID
     Route: 041
     Dates: start: 20250421, end: 20250424

REACTIONS (1)
  - Epilepsy [Recovering/Resolving]

NARRATIVE: CASE EVENT DATE: 20250423
